FAERS Safety Report 7543763-9 (Version None)
Quarter: 2011Q2

REPORT INFORMATION
  Report Type: 
  Country: None (occurrence: None)
  Receive Date: 20110613
  Receipt Date: 20040902
  Transmission Date: 20111010
  Serious: Yes (Hospitalization, Other)
  Sender: FDA-Public Use
  Company Number: PHHO2004CH12313

PATIENT
  Age: 78 Year
  Sex: Female

DRUGS (4)
  1. COTENOLOL-MEPHA-NEO MITE [Concomitant]
     Indication: HYPERTENSION
  2. DIOVAN [Suspect]
     Indication: HYPERTENSION
     Dosage: 160 MG, QD
     Dates: start: 20040507, end: 20040701
  3. OMEPRAZOLE [Concomitant]
  4. ASPIRIN [Concomitant]

REACTIONS (3)
  - AORTIC STENOSIS [None]
  - URINARY TRACT INFECTION [None]
  - VENTRICULAR HYPERTROPHY [None]
